FAERS Safety Report 15090741 (Version 1)
Quarter: 2018Q2

REPORT INFORMATION
  Report Type: Spontaneous
  Country: US (occurrence: US)
  Receive Date: 20180629
  Receipt Date: 20180629
  Transmission Date: 20180711
  Serious: Yes (Other)
  Sender: FDA-Public Use
  Company Number: US-COOPERSURGICAL, INC.-US-2018CPS032328

PATIENT

DRUGS (1)
  1. PARAGARD T 380A [Suspect]
     Active Substance: COPPER
     Indication: CONTRACEPTION
     Dosage: UNK
     Route: 015
     Dates: end: 20180525

REACTIONS (11)
  - Complication of device removal [Unknown]
  - Pain [Unknown]
  - Ovarian germ cell teratoma benign [Unknown]
  - Ovarian cyst [Unknown]
  - Vaginal discharge [Unknown]
  - Device dislocation [Unknown]
  - Smear cervix abnormal [Unknown]
  - Foreign body in reproductive tract [Not Recovered/Not Resolved]
  - Cervical dysplasia [Unknown]
  - Device breakage [Unknown]
  - Muscle spasms [Unknown]

NARRATIVE: CASE EVENT DATE: 20180219
